FAERS Safety Report 8332762-5 (Version None)
Quarter: 2012Q2

REPORT INFORMATION
  Report Type: 
  Country: None (occurrence: None)
  Receive Date: 20120503
  Receipt Date: 20120418
  Transmission Date: 20120825
  Serious: Yes (Hospitalization, Other)
  Sender: FDA-Public Use
  Company Number: CN-JNJFOC-20110901195

PATIENT
  Sex: Female
  Weight: 17.5 kg

DRUGS (4)
  1. PEVISONE [Suspect]
     Indication: BLISTER
     Route: 065
  2. UREA CREAM [Suspect]
     Indication: BLISTER
     Dosage: QUANTITY SUFFICIENT
     Route: 061
     Dates: start: 20110830, end: 20110901
  3. MICONAZOLE [Suspect]
     Indication: RASH VESICULAR
     Dosage: QUANTITY SUFFICIENT
     Route: 061
     Dates: start: 20110830, end: 20110901
  4. MICONAZOLE [Suspect]
     Indication: BLISTER
     Dosage: QUANTITY SUFFICIENT
     Route: 061
     Dates: start: 20110830, end: 20110901

REACTIONS (2)
  - WRONG DRUG ADMINISTERED [None]
  - BLISTER [None]
